FAERS Safety Report 8521658-1 (Version None)
Quarter: 2012Q3

REPORT INFORMATION
  Report Type: 
  Country: None (occurrence: None)
  Receive Date: 20120719
  Receipt Date: 20120717
  Transmission Date: 20120928
  Serious: Yes (Hospitalization, Other)
  Sender: FDA-Public Use
  Company Number: PHHY2012BR036162

PATIENT
  Sex: Female
  Weight: 99 kg

DRUGS (8)
  1. AEROLONE [Concomitant]
     Indication: ASTHMA
     Dosage: 1 DF, BID(1 SQUIRT 2 TIMES A DAY)
  2. FORMOTEROL FUMARATE [Suspect]
     Dosage: 1 DF, (1 CAPSULES OF EACH TREATMENT 3 OR 4 TIMES A DAY)
  3. VITAMIN E [Concomitant]
     Indication: SCLERODERMA
     Dosage: 1 DF, (1 TABLET A DAY)
     Route: 048
  4. FORMOTEROL FUMARATE [Suspect]
     Indication: ASTHMA
     Dosage: 1 DF, BID (1 CAPSULE OF EACH TREATMENT (EACH ACTIVE PRINCIPLE) 2 TIMES A DAY)
  5. FORMOTEROL FUMARATE [Suspect]
     Dosage: 1 DF, 1 CAPSULE OF EACH TREATMENT 2 TIMES A DAY.
  6. HYDROCHLOROTHIAZIDE [Concomitant]
     Indication: HYPERTENSION
     Dosage: 1 DF, (1 TABLET A DAY)
     Route: 048
  7. LOSARTAN POTASSIUM [Concomitant]
     Indication: HYPERTENSION
     Dosage: 1 DF, (1 TABLET A DAY)
     Route: 048
  8. ISO SOY [Concomitant]
     Indication: HORMONE REPLACEMENT THERAPY

REACTIONS (18)
  - MALAISE [None]
  - DYSPHONIA [None]
  - OSTEOPENIA [None]
  - COUGH [None]
  - SPEECH DISORDER [None]
  - DEVICE MALFUNCTION [None]
  - ARTHRALGIA [None]
  - INCREASED BRONCHIAL SECRETION [None]
  - DYSPNOEA [None]
  - OSTEOARTHRITIS [None]
  - WHEEZING [None]
  - CALCULUS BLADDER [None]
  - DIZZINESS [None]
  - MUSCULOSKELETAL PAIN [None]
  - ASTHMA [None]
  - TREMOR [None]
  - FATIGUE [None]
  - BLOOD GLUCOSE INCREASED [None]
